FAERS Safety Report 10725020 (Version 1)
Quarter: 2015Q1

REPORT INFORMATION
  Report Type: Spontaneous
  Country: DK (occurrence: FR)
  Receive Date: 20150120
  Receipt Date: 20150120
  Transmission Date: 20150721
  Serious: Yes (Hospitalization)
  Sender: FDA-Public Use
  Company Number: FR-FRI-1000073643

PATIENT
  Age: 78 Year
  Sex: Female
  Weight: 78.2 kg

DRUGS (9)
  1. MEMANTINE [Suspect]
     Active Substance: MEMANTINE
     Dosage: 20MG
     Route: 065
  2. VALSARTAN. [Suspect]
     Active Substance: VALSARTAN
     Route: 065
  3. AERIUS [Suspect]
     Active Substance: DESLORATADINE
     Route: 065
  4. DIFFU K [Concomitant]
     Active Substance: POTASSIUM CHLORIDE
  5. HYDROCHLOROTHIAZIDE. [Suspect]
     Active Substance: HYDROCHLOROTHIAZIDE
     Route: 065
  6. ACEBUTOLOL [Suspect]
     Active Substance: ACEBUTOLOL
     Route: 065
  7. EXELON [Suspect]
     Active Substance: RIVASTIGMINE TARTRATE
     Dosage: 1.5MG
     Route: 065
  8. RASILEZ [Suspect]
     Active Substance: ALISKIREN
     Route: 065
  9. IMOVANE [Suspect]
     Active Substance: ZOPICLONE
     Route: 065

REACTIONS (3)
  - Malaise [Recovered/Resolved]
  - Loss of consciousness [Recovered/Resolved]
  - Vertigo [Recovered/Resolved]

NARRATIVE: CASE EVENT DATE: 20141003
